FAERS Safety Report 6875897-6 (Version None)
Quarter: 2010Q3

REPORT INFORMATION
  Report Type: 
  Country: None (occurrence: None)
  Receive Date: 20100727
  Receipt Date: 20100716
  Transmission Date: 20110219
  Serious: Yes (Other)
  Sender: FDA-Public Use
  Company Number: US-ASTRAZENECA-2010SE33305

PATIENT
  Age: 67 Year
  Sex: Female
  Weight: 76.6 kg

DRUGS (10)
  1. PRILOSEC [Suspect]
     Route: 048
     Dates: end: 20100101
  2. PRILOSEC [Suspect]
     Route: 048
  3. PLAVIX [Suspect]
     Indication: STENT PLACEMENT
     Route: 048
     Dates: start: 20050101
  4. CRESTOR [Concomitant]
     Route: 048
  5. ZOLOFT [Concomitant]
  6. PREDNISONE [Concomitant]
  7. MACROBID [Concomitant]
  8. PRIMIDONE [Concomitant]
  9. ROBAXIN [Concomitant]
  10. LEVOTHYROXINE [Concomitant]

REACTIONS (2)
  - CORONARY ARTERY OCCLUSION [None]
  - DEVICE OCCLUSION [None]
